FAERS Safety Report 6029707-X (Version None)
Quarter: 2009Q1

REPORT INFORMATION
  Report Type: 
  Country: None (occurrence: None)
  Receive Date: 20090107
  Receipt Date: 20081226
  Transmission Date: 20090719
  Serious: Yes (Other)
  Sender: FDA-Public Use
  Company Number: JP-PFIZER INC-2009150357

PATIENT

DRUGS (2)
  1. ALDACTONE [Suspect]
     Dosage: UNK
     Route: 048
     Dates: start: 20080827, end: 20081226
  2. MINOXIDIL [Concomitant]

REACTIONS (2)
  - BREAST DISCOMFORT [None]
  - TUMOUR MARKER INCREASED [None]
